FAERS Safety Report 4708809-1 (Version None)
Quarter: 2005Q3

REPORT INFORMATION
  Report Type: 
  Country: None (occurrence: None)
  Receive Date: 20050705
  Receipt Date: 20050620
  Transmission Date: 20060218
  Serious: Yes (Death, Life-Threatening, Hospitalization)
  Sender: FDA-Public Use
  Company Number: S02-341-441

PATIENT
  Age: 64 Year
  Sex: Male
  Weight: 70 kg

DRUGS (12)
  1. VELCADE [Suspect]
     Indication: MULTIPLE MYELOMA
     Dosage: 2.3 MG BIW, IV BOLUS
     Route: 040
     Dates: start: 20021029, end: 20021213
  2. ALLOPURINOL [Concomitant]
  3. RANITIDINE [Concomitant]
  4. GAVISCON [Concomitant]
  5. SOLPADOL [Concomitant]
  6. PAMIDRONATE DISODIUM [Concomitant]
  7. ORAMORPH SR [Concomitant]
  8. DICLOFENAC SODIUM [Concomitant]
  9. METOCLOPRAMIDE [Concomitant]
  10. ROFECOXIB [Concomitant]
  11. GABAPENTIN [Concomitant]
  12. FYBOGEL [Concomitant]

REACTIONS (3)
  - LOWER RESPIRATORY TRACT INFECTION [None]
  - MALIGNANT NEOPLASM PROGRESSION [None]
  - MULTIPLE MYELOMA [None]
